FAERS Safety Report 4792370-X (Version None)
Quarter: 2005Q4

REPORT INFORMATION
  Report Type: 
  Country: None (occurrence: None)
  Receive Date: 20051010
  Receipt Date: 20050928
  Transmission Date: 20060501
  Serious: Yes (Hospitalization)
  Sender: FDA-Public Use
  Company Number: US-JNJFOC-20050906817

PATIENT
  Sex: Male
  Weight: 83.46 kg

DRUGS (5)
  1. REMICADE [Suspect]
     Indication: RHEUMATOID ARTHRITIS
     Route: 042
  2. METHOTREXATE [Concomitant]
     Indication: RHEUMATOID ARTHRITIS
  3. ANALGESIC [Concomitant]
     Indication: RHEUMATOID ARTHRITIS
  4. ENBREL [Concomitant]
     Indication: RHEUMATOID ARTHRITIS
  5. HUMIRA [Concomitant]
     Indication: RHEUMATOID ARTHRITIS

REACTIONS (2)
  - DIABETIC COMPLICATION [None]
  - SHOCK [None]
